FAERS Safety Report 18454198 (Version 11)
Quarter: 2023Q1

REPORT INFORMATION
  Report Type: Report from Study
  Country: CA (occurrence: CA)
  Receive Date: 20201102
  Receipt Date: 20230216
  Transmission Date: 20230418
  Serious: Yes (Other)
  Sender: FDA-Public Use
  Company Number: CA-JNJFOC-20201046223

PATIENT
  Age: 44 Year
  Sex: Female
  Weight: 86 kg

DRUGS (3)
  1. SIMPONI [Suspect]
     Active Substance: GOLIMUMAB
     Indication: Crohn^s disease
     Dosage: ALSO REPORTED 1-JAN-2020
     Route: 058
     Dates: start: 20200120
  2. SIMPONI [Suspect]
     Active Substance: GOLIMUMAB
     Dosage: LATEST ADMINISTRATION WAS REPORTED AS 26-JUL-2022.
     Route: 058
  3. SIMPONI [Suspect]
     Active Substance: GOLIMUMAB
     Dosage: LATEST ADMINISTRATION WAS REPORTED AS 26-JUL-2022.
     Route: 058

REACTIONS (10)
  - Anal abscess [Not Recovered/Not Resolved]
  - Anal fistula [Not Recovered/Not Resolved]
  - Gastrointestinal stoma complication [Unknown]
  - Dry skin [Unknown]
  - Chills [Unknown]
  - Hyperhidrosis [Unknown]
  - Nausea [Unknown]
  - Vomiting [Unknown]
  - Post procedural complication [Unknown]
  - Abscess [Not Recovered/Not Resolved]

NARRATIVE: CASE EVENT DATE: 20200101
